FAERS Safety Report 25924918 (Version 2)
Quarter: 2025Q4

REPORT INFORMATION
  Report Type: Spontaneous
  Country: US (occurrence: US)
  Receive Date: 20251015
  Receipt Date: 20251024
  Transmission Date: 20260117
  Serious: No
  Sender: PHARMING GROUP
  Company Number: US-PHARMING-PHAUS2025001431

PATIENT

DRUGS (1)
  1. JOENJA [Suspect]
     Active Substance: LENIOLISIB PHOSPHATE
     Indication: Autoimmune lymphoproliferative syndrome
     Dosage: 70 MILLIGRAM, BID
     Route: 048

REACTIONS (1)
  - Product prescribing issue [Unknown]
